FAERS Safety Report 5814578-4 (Version None)
Quarter: 2008Q3

REPORT INFORMATION
  Report Type: 
  Country: None (occurrence: None)
  Receive Date: 20080718
  Receipt Date: 20071017
  Transmission Date: 20090109
  Serious: No
  Sender: FDA-Public Use
  Company Number: US-KINGPHARMUSA00001-K200701341

PATIENT

DRUGS (4)
  1. LEVOXYL [Suspect]
     Dosage: ^0.75 MCG^, QD
     Route: 048
     Dates: start: 20000101
  2. UNSPECIFIED MEDICATIONS [Concomitant]
     Indication: HEADACHE
  3. UNSPECIFIED INHALERS [Concomitant]
     Indication: ASTHMA
  4. CIMETIDINE [Concomitant]
     Indication: STOMACH DISCOMFORT

REACTIONS (1)
  - ANTIBODY TEST ABNORMAL [None]
